FAERS Safety Report 7116982-3 (Version None)
Quarter: 2010Q4

REPORT INFORMATION
  Report Type: 
  Country: None (occurrence: None)
  Receive Date: 20101122
  Receipt Date: 20100914
  Transmission Date: 20110411
  Serious: Yes (Hospitalization)
  Sender: FDA-Public Use
  Company Number: US-BAYER-201025803NA

PATIENT
  Age: 36 Year
  Sex: Female

DRUGS (6)
  1. YAZ [Suspect]
     Indication: CONTRACEPTION
     Route: 048
     Dates: start: 20050101
  2. YASMIN [Suspect]
     Indication: PRODUCT USED FOR UNKNOWN INDICATION
     Route: 048
  3. ORTHO-NOVUM [Concomitant]
     Dosage: IT WAS MENTIONED HAVE BEEN USED IN 2002
     Route: 048
  4. MICROGESTIN 1.5/30 [Concomitant]
     Dosage: MICROGESTIN 1/20 HAVE BEEN USED IN 2002
     Route: 048
  5. MULTI-VITAMIN [Concomitant]
  6. UNKNOWN DRUG [Concomitant]
     Indication: HYPERSENSITIVITY

REACTIONS (8)
  - ABDOMINAL PAIN UPPER [None]
  - CHOLECYSTITIS CHRONIC [None]
  - CHOLELITHIASIS [None]
  - DECREASED APPETITE [None]
  - DIARRHOEA [None]
  - GASTRITIS [None]
  - NAUSEA [None]
  - VOMITING [None]
